FAERS Safety Report 6601855-2 (Version None)
Quarter: 2010Q1

REPORT INFORMATION
  Report Type: 
  Country: None (occurrence: None)
  Receive Date: 20100218
  Receipt Date: 20100208
  Transmission Date: 20100710
  Serious: Yes (Hospitalization, Disabling)
  Sender: FDA-Public Use
  Company Number: WAES 0909USA02893

PATIENT
  Age: 43 Year
  Sex: Male

DRUGS (10)
  1. ISENTRESS [Suspect]
     Indication: HIV INFECTION
     Dosage: 800MG/DAILY, PO
     Route: 048
     Dates: start: 20071013, end: 20081008
  2. EFAVIRENZ [Suspect]
     Indication: HIV INFECTION
     Dosage: 600 MG/DAILY, PO
     Route: 048
     Dates: start: 20071013, end: 20080925
  3. NORVIR [Suspect]
     Indication: HIV INFECTION
     Dosage: 200 MG/DAILY, PO
     Route: 048
     Dates: start: 20071013, end: 20081008
  4. TRUVADA [Suspect]
     Indication: HIV INFECTION
     Dosage: 1 DOSE/DAILY, PO
     Route: 048
     Dates: start: 20070926, end: 20081008
  5. PREZISTA [Suspect]
     Indication: HIV INFECTION
     Dosage: 1200 MG/DAILY, PO
     Route: 048
     Dates: start: 20071013, end: 20081008
  6. INJ T-20 (ENFUVIRTIDE) [Suspect]
     Indication: HIV INFECTION
     Dosage: 90 MG/BID, SC
     Route: 058
     Dates: start: 20071013, end: 20071110
  7. INJ T-20 (ENFUVIRTIDE) [Suspect]
     Indication: HIV INFECTION
     Dosage: 90 MG/BID, SC
     Route: 058
     Dates: start: 20080507, end: 20080925
  8. DEPAKENE [Concomitant]
  9. LENDORMIN [Concomitant]
  10. RISPERDAL [Concomitant]

REACTIONS (4)
  - AIDS ENCEPHALOPATHY [None]
  - DRUG INEFFECTIVE [None]
  - FALL [None]
  - SUBDURAL HAEMATOMA [None]
